FAERS Safety Report 4791863-9 (Version None)
Quarter: 2005Q4

REPORT INFORMATION
  Report Type: 
  Country: None (occurrence: None)
  Receive Date: 20051007
  Receipt Date: 20050711
  Transmission Date: 20060501
  Serious: Yes (Hospitalization)
  Sender: FDA-Public Use
  Company Number: FR-BRISTOL-MYERS SQUIBB COMPANY-13036678

PATIENT
  Age: 20 Year
  Sex: Male
  Weight: 95 kg

DRUGS (2)
  1. ABILIFY [Suspect]
     Indication: SCHIZOPHRENIA
     Route: 048
     Dates: start: 20050127
  2. LYSANXIA [Concomitant]
     Dates: start: 20050101, end: 20050623

REACTIONS (2)
  - FACIAL PALSY [None]
  - HYPOACUSIS [None]
